FAERS Safety Report 7781385-5 (Version None)
Quarter: 2011Q3

REPORT INFORMATION
  Report Type: 
  Country: None (occurrence: None)
  Receive Date: 20110927
  Receipt Date: 20110919
  Transmission Date: 20111222
  Serious: Yes (Hospitalization, Disabling, Other)
  Sender: FDA-Public Use
  Company Number: US-MERCK-1007USA04077

PATIENT
  Age: 56 Year
  Sex: Female
  Weight: 75 kg

DRUGS (10)
  1. FOSAMAX [Suspect]
     Route: 048
     Dates: start: 20080207
  2. FOSAMAX PLUS D [Suspect]
     Indication: OSTEOPOROSIS
     Route: 048
     Dates: start: 20060901, end: 20080301
  3. PRIMIDONE [Concomitant]
     Route: 065
  4. CRESTOR [Concomitant]
     Route: 065
  5. FOSAMAX [Suspect]
     Indication: OSTEOPOROSIS PROPHYLAXIS
     Dosage: 1 X WEEK
     Route: 048
     Dates: start: 19980101, end: 20060901
  6. FOSAMAX [Suspect]
     Route: 048
     Dates: start: 20080207
  7. VITAMIN D (UNSPECIFIED) [Concomitant]
     Indication: OSTEOPOROSIS
     Route: 065
     Dates: start: 19980101
  8. FOSAMAX [Suspect]
     Indication: OSTEOPOROSIS
     Dosage: 1 X WEEK
     Route: 048
     Dates: start: 19980101, end: 20060901
  9. BONIVA [Concomitant]
     Indication: OSTEOPOROSIS
     Dosage: 150 1 X MTH
     Route: 048
     Dates: start: 20080101, end: 20100101
  10. CALCIUM (UNSPECIFIED) AND VITAMIN D (UNSPECIFIED) [Concomitant]
     Route: 065

REACTIONS (34)
  - NERVE INJURY [None]
  - TOOTH DISORDER [None]
  - BURSITIS [None]
  - APPENDIX DISORDER [None]
  - FALL [None]
  - IMPAIRED HEALING [None]
  - OSTEOARTHRITIS [None]
  - BACK PAIN [None]
  - NAUSEA [None]
  - HAEMORRHOIDS [None]
  - MUSCULOSKELETAL PAIN [None]
  - GASTROENTERITIS VIRAL [None]
  - VOMITING [None]
  - BLOOD CHOLESTEROL INCREASED [None]
  - CLAUSTROPHOBIA [None]
  - THROMBOSIS [None]
  - UPPER LIMB FRACTURE [None]
  - FRACTURE NONUNION [None]
  - PANCREATITIS VIRAL [None]
  - BREAST CALCIFICATIONS [None]
  - EXOSTOSIS [None]
  - ARTHROPATHY [None]
  - HEPATITIS [None]
  - FOOT FRACTURE [None]
  - FEMUR FRACTURE [None]
  - PELVIC FRACTURE [None]
  - JOINT DISLOCATION [None]
  - INTERVERTEBRAL DISC DEGENERATION [None]
  - BUNION [None]
  - GOUTY ARTHRITIS [None]
  - JOINT EFFUSION [None]
  - LIMB CRUSHING INJURY [None]
  - DRUG HYPERSENSITIVITY [None]
  - SKIN PAPILLOMA [None]
